FAERS Safety Report 22030244 (Version 6)
Quarter: 2023Q2

REPORT INFORMATION
  Report Type: Spontaneous
  Country: US (occurrence: US)
  Receive Date: 20230223
  Receipt Date: 20230605
  Transmission Date: 20230721
  Serious: Yes (Other)
  Sender: FDA-Public Use
  Company Number: US-BRISTOL-MYERS SQUIBB COMPANY-2023-026932

PATIENT
  Age: 33 Year
  Sex: Female

DRUGS (3)
  1. SPRYCEL [Suspect]
     Active Substance: DASATINIB
     Indication: Chronic myeloid leukaemia
     Route: 048
     Dates: start: 20230207
  2. SPRYCEL [Suspect]
     Active Substance: DASATINIB
     Route: 048
     Dates: start: 202302
  3. SPRYCEL [Suspect]
     Active Substance: DASATINIB
     Route: 048
     Dates: start: 202305

REACTIONS (17)
  - Nausea [Unknown]
  - Migraine [Unknown]
  - Mental status changes [Unknown]
  - Vision blurred [Unknown]
  - Constipation [Unknown]
  - Gastrointestinal pain [Unknown]
  - Gastrointestinal disorder [Unknown]
  - Abdominal discomfort [Unknown]
  - Rectal haemorrhage [Unknown]
  - Dehydration [Unknown]
  - Dizziness [Unknown]
  - Mouth ulceration [Unknown]
  - Neuropathy peripheral [Unknown]
  - Fatigue [Unknown]
  - Stomatitis [Unknown]
  - Alopecia [Unknown]
  - Bone pain [Unknown]

NARRATIVE: CASE EVENT DATE: 20230209
